FAERS Safety Report 7354059-2 (Version None)
Quarter: 2011Q1

REPORT INFORMATION
  Report Type: 
  Country: None (occurrence: None)
  Receive Date: 20110315
  Receipt Date: 20110310
  Transmission Date: 20110831
  Serious: Yes (Death, Other)
  Sender: FDA-Public Use
  Company Number: PHHY2011JP19619

PATIENT
  Sex: Male

DRUGS (9)
  1. MYSLEE [Concomitant]
     Dosage: 5 MG, UNK
     Route: 048
     Dates: start: 20100722, end: 20100820
  2. OXYCONTIN [Concomitant]
     Dosage: 30 MG, UNK
     Route: 048
     Dates: start: 20100728, end: 20100820
  3. INTERFERON ALFA [Concomitant]
     Indication: METASTATIC RENAL CELL CARCINOMA
     Dosage: 5000000 IU, UNK
     Dates: start: 20071113, end: 20090701
  4. CALONAL [Concomitant]
     Dosage: 3 DF, UNK
     Route: 048
     Dates: start: 20100810, end: 20100820
  5. PURSENNID [Concomitant]
     Dosage: 12 MG, UNK
     Route: 048
     Dates: start: 20100722, end: 20100820
  6. MAGLAX [Concomitant]
     Dosage: 1.5 G, UNK
     Route: 048
     Dates: start: 20100810, end: 20100820
  7. AFINITOR [Suspect]
     Dosage: 5 MG, DAILY
     Route: 048
     Dates: start: 20100816, end: 20100820
  8. SUNITINIB MALATE [Concomitant]
     Indication: METASTATIC RENAL CELL CARCINOMA
     Dosage: 37.5 DF, UNK
     Route: 048
     Dates: start: 20091005, end: 20100607
  9. AFINITOR [Suspect]
     Indication: METASTATIC RENAL CELL CARCINOMA
     Dosage: 5 MG, DAILY
     Route: 048
     Dates: start: 20100728, end: 20100809

REACTIONS (2)
  - INTERSTITIAL LUNG DISEASE [None]
  - PNEUMONIA BACTERIAL [None]
